FAERS Safety Report 22194925 (Version 1)
Quarter: 2023Q2

REPORT INFORMATION
  Report Type: Other
  Country: US (occurrence: US)
  Receive Date: 20230411
  Receipt Date: 20230411
  Transmission Date: 20230721
  Serious: Yes (Death)
  Sender: FDA-Public Use
  Company Number: US-ALVOGEN-2023090254

PATIENT
  Age: 54 Year
  Sex: Male

DRUGS (2)
  1. BUPRENORPHINE\NALOXONE [Suspect]
     Active Substance: BUPRENORPHINE\NALOXONE
     Indication: Intentional product misuse
     Route: 048
  2. BENZOCAINE [Suspect]
     Active Substance: BENZOCAINE
     Indication: Intentional product misuse
     Route: 048

REACTIONS (4)
  - Cardiac arrest [Fatal]
  - Respiratory arrest [Fatal]
  - Intentional product misuse [Fatal]
  - Incorrect route of product administration [Unknown]
